FAERS Safety Report 18168852 (Version 1)
Quarter: 2020Q3

REPORT INFORMATION
  Report Type: Spontaneous
  Country: US (occurrence: US)
  Receive Date: 20200818
  Receipt Date: 20200818
  Transmission Date: 20201103
  Serious: Yes (Other)
  Sender: FDA-Public Use
  Company Number: None

PATIENT
  Age: 73 Year
  Sex: Female
  Weight: 63 kg

DRUGS (4)
  1. SIMSVASTATIN [Concomitant]
  2. LEVOTHYROXINE\THYROXINE [Concomitant]
     Active Substance: LEVOTHYROXINE
  3. PYROXETINE [Concomitant]
  4. BUPROPION. [Suspect]
     Active Substance: BUPROPION
     Indication: DEPRESSION
     Dosage: ?          QUANTITY:1 TABLET(S);?
     Route: 048

REACTIONS (6)
  - Tremor [None]
  - Dyskinesia [None]
  - Product substitution issue [None]
  - Hypersensitivity [None]
  - Reading disorder [None]
  - Impaired work ability [None]

NARRATIVE: CASE EVENT DATE: 20180101
